FAERS Safety Report 6741964-0 (Version None)
Quarter: 2010Q2

REPORT INFORMATION
  Report Type: 
  Country: None (occurrence: None)
  Receive Date: 20100526
  Receipt Date: 20100517
  Transmission Date: 20101027
  Serious: Yes (Hospitalization)
  Sender: FDA-Public Use
  Company Number: US-ROCHE-704704

PATIENT
  Age: 59 Year
  Sex: Female
  Weight: 73.9 kg

DRUGS (9)
  1. PEGASYS [Suspect]
     Indication: HEPATITIS C
     Route: 065
     Dates: start: 20100201, end: 20100501
  2. RIBASPHERE [Suspect]
     Indication: HEPATITIS C
     Dosage: 2 TABLETS DAILY
     Route: 048
     Dates: start: 20100201, end: 20100501
  3. BUSPIRONE HCL [Concomitant]
  4. ACETAMINOPHEN [Concomitant]
  5. THEOPHYLLINE [Concomitant]
  6. CARDIZEM [Concomitant]
  7. WELLBUTRIN XL [Concomitant]
  8. ASPIRIN [Concomitant]
     Dosage: DRUG REPORTED AS BABY ASPIRIN
  9. ELAVIL [Concomitant]

REACTIONS (4)
  - DYSPNOEA [None]
  - PNEUMONIA [None]
  - SPEECH DISORDER [None]
  - WHITE BLOOD CELL COUNT DECREASED [None]
